FAERS Safety Report 10395766 (Version 1)
Quarter: 2014Q3

REPORT INFORMATION
  Report Type: Spontaneous
  Country: US (occurrence: None)
  Receive Date: 20140815
  Receipt Date: 20140815
  Transmission Date: 20150326
  Serious: Yes (Hospitalization, Disabling)
  Sender: FDA-Public Use
  Company Number: None

PATIENT

DRUGS (2)
  1. LYRICA [Suspect]
     Active Substance: PREGABALIN
     Indication: PERIPHERAL NERVE LESION
     Dosage: 75 MG??2 PILLS?LADWAY + AT THE TIME?MOUTH
     Route: 048
     Dates: end: 201403
  2. LYRICA [Suspect]
     Active Substance: PREGABALIN
     Indication: FIBROMYALGIA
     Dosage: 75 MG??2 PILLS?LADWAY + AT THE TIME?MOUTH
     Route: 048
     Dates: end: 201403

REACTIONS (3)
  - Pain [None]
  - Madarosis [None]
  - Pruritus [None]
